FAERS Safety Report 20627822 (Version 2)
Quarter: 2022Q1

REPORT INFORMATION
  Report Type: Spontaneous
  Country: US (occurrence: US)
  Receive Date: 20220323
  Receipt Date: 20220330
  Transmission Date: 20220423
  Serious: No
  Sender: FDA-Public Use
  Company Number: US-TORRENT-00011797

PATIENT
  Age: 26 Year
  Sex: Male
  Weight: 48 kg

DRUGS (1)
  1. DAPSONE [Suspect]
     Active Substance: DAPSONE
     Indication: Acne
     Dosage: UNKNOWN
     Route: 065
     Dates: start: 20220224, end: 20220303

REACTIONS (3)
  - Acne [Unknown]
  - Drug ineffective [Unknown]
  - Product quality issue [Unknown]
